FAERS Safety Report 7590808-6 (Version None)
Quarter: 2011Q3

REPORT INFORMATION
  Report Type: 
  Country: None (occurrence: None)
  Receive Date: 20110705
  Receipt Date: 20110622
  Transmission Date: 20111222
  Serious: Yes (Other)
  Sender: FDA-Public Use
  Company Number: PHHY2011BR56250

PATIENT
  Sex: Female

DRUGS (3)
  1. LAMISIL [Suspect]
     Dosage: UNK
  2. LIPITOR [Interacting]
     Dosage: UNK
  3. TERBINAFINE HCL [Interacting]
     Indication: ONYCHOMYCOSIS
     Dosage: UNK
     Dates: start: 20110201, end: 20110301

REACTIONS (6)
  - ALANINE AMINOTRANSFERASE INCREASED [None]
  - DRUG INTERACTION [None]
  - POLYMYOSITIS [None]
  - HEPATIC ENZYME INCREASED [None]
  - BLOOD CREATINE PHOSPHOKINASE INCREASED [None]
  - ASPARTATE AMINOTRANSFERASE INCREASED [None]
